FAERS Safety Report 25344849 (Version 2)
Quarter: 2025Q2

REPORT INFORMATION
  Report Type: Spontaneous
  Country: JP (occurrence: JP)
  Receive Date: 20250522
  Receipt Date: 20250612
  Transmission Date: 20250716
  Serious: Yes (Other)
  Sender: AMGEN
  Company Number: JP-KYOWAKIRIN-2025KK008933

PATIENT
  Sex: Female

DRUGS (1)
  1. PEGFILGRASTIM [Suspect]
     Active Substance: PEGFILGRASTIM
     Indication: Product used for unknown indication
     Route: 058

REACTIONS (2)
  - Haemolytic anaemia [Unknown]
  - Cold type haemolytic anaemia [Unknown]
